FAERS Safety Report 26092392 (Version 2)
Quarter: 2025Q4

REPORT INFORMATION
  Report Type: Spontaneous
  Country: US (occurrence: US)
  Receive Date: 20251126
  Receipt Date: 20251127
  Transmission Date: 20260117
  Serious: No
  Sender: NOVARTIS
  Company Number: US-002147023-NVSC2025US181326

PATIENT

DRUGS (2)
  1. RHAPSIDO [Suspect]
     Active Substance: REMIBRUTINIB
     Indication: Chronic spontaneous urticaria
     Dosage: 25 MG, QD (EVERY 12 HOURS )
     Route: 048
     Dates: start: 20251110, end: 20251110
  2. RHAPSIDO [Suspect]
     Active Substance: REMIBRUTINIB
     Dosage: UNK, QW
     Route: 048

REACTIONS (1)
  - Mucocutaneous haemorrhage [Unknown]
